FAERS Safety Report 17963233 (Version 1)
Quarter: 2020Q2

REPORT INFORMATION
  Report Type: Spontaneous
  Country: US (occurrence: US)
  Receive Date: 20200630
  Receipt Date: 20200630
  Transmission Date: 20200714
  Serious: No
  Sender: FDA-Public Use
  Company Number: None

PATIENT
  Age: 34 Year
  Sex: Female
  Weight: 58.5 kg

DRUGS (3)
  1. B12 VITAMINS [Concomitant]
  2. VYLEESI [Suspect]
     Active Substance: BREMELANOTIDE ACETATE
     Indication: LIBIDO DECREASED
     Route: 058
     Dates: start: 20200528, end: 20200629
  3. MELATONIN [Concomitant]
     Active Substance: MELATONIN

REACTIONS (8)
  - Insomnia [None]
  - Myalgia [None]
  - Pain [None]
  - Nausea [None]
  - Cough [None]
  - Retching [None]
  - Vomiting [None]
  - Crying [None]

NARRATIVE: CASE EVENT DATE: 20200629
